FAERS Safety Report 17592930 (Version 1)
Quarter: 2020Q1

REPORT INFORMATION
  Report Type: Spontaneous
  Country: US (occurrence: US)
  Receive Date: 20200327
  Receipt Date: 20200327
  Transmission Date: 20200409
  Serious: No
  Sender: FDA-Public Use
  Company Number: US-AMNEAL PHARMACEUTICALS-2019-IPXL-01391

PATIENT
  Sex: Female
  Weight: 71 kg

DRUGS (9)
  1. ZEJULA [Concomitant]
     Active Substance: NIRAPARIB
     Dosage: 100 MILLIGRAM, BEDTIME
     Route: 065
     Dates: start: 20181010
  2. ALENDRONATE SODIUM IR [Suspect]
     Active Substance: ALENDRONATE SODIUM
     Indication: BONE DENSITY DECREASED
     Dosage: 70 MILLIGRAM, 1 /WEEK
     Route: 065
  3. ZEJULA [Concomitant]
     Active Substance: NIRAPARIB
     Dosage: 100 MILLIGRAM, BEDTIME
     Route: 065
     Dates: start: 20181010
  4. ZEJULA [Concomitant]
     Active Substance: NIRAPARIB
     Dosage: 100 MILLIGRAM, QD
     Route: 048
     Dates: start: 20180502, end: 20180727
  5. ZEJULA [Concomitant]
     Active Substance: NIRAPARIB
     Dosage: 200 MILLIGRAM, QD
     Route: 065
     Dates: start: 20180315, end: 20180411
  6. VICTOZA [Concomitant]
     Active Substance: LIRAGLUTIDE
     Indication: BLOOD GLUCOSE INCREASED
     Dosage: UNK
     Route: 065
  7. BYDUREON [Concomitant]
     Active Substance: EXENATIDE
     Indication: BLOOD GLUCOSE INCREASED
     Dosage: UNK UNK, 1 /WEEK
     Route: 065
  8. ZEJULA [Concomitant]
     Active Substance: NIRAPARIB
     Dosage: 100 MILLIGRAM, QD
     Route: 048
     Dates: start: 201808, end: 20181001
  9. ZEJULA [Concomitant]
     Active Substance: NIRAPARIB
     Indication: OVARIAN CANCER
     Dosage: 100 MILLIGRAM, DAILY
     Route: 048
     Dates: start: 20180315, end: 2018

REACTIONS (2)
  - Rash [Unknown]
  - Drug hypersensitivity [Unknown]
